FAERS Safety Report 23264196 (Version 2)
Quarter: 2023Q4

REPORT INFORMATION
  Report Type: Spontaneous
  Country: CZ (occurrence: CZ)
  Receive Date: 20231205
  Receipt Date: 20231211
  Transmission Date: 20240109
  Serious: Yes (Other)
  Sender: FDA-Public Use
  Company Number: CZ-PFIZER INC-PV202300195152

PATIENT
  Age: 35 Year
  Sex: Male

DRUGS (3)
  1. MYLOTARG [Suspect]
     Active Substance: GEMTUZUMAB OZOGAMICIN
     Indication: Acute myeloid leukaemia
     Dosage: 5 MG, SINGLE (DAY 1)
     Route: 042
     Dates: start: 20200722, end: 20200722
  2. CYTARABINE [Suspect]
     Active Substance: CYTARABINE
     Indication: Acute myeloid leukaemia
     Dosage: 400 MG, SINGLE, DAY 1
     Route: 042
     Dates: start: 20200722, end: 20200722
  3. DAUNORUBICIN [Suspect]
     Active Substance: DAUNORUBICIN
     Indication: Acute myeloid leukaemia
     Dosage: 120 MG, SINGLE (DAY 1)
     Route: 042
     Dates: start: 20200722

REACTIONS (4)
  - Tumour lysis syndrome [Unknown]
  - Pyrexia [Unknown]
  - Chills [Unknown]
  - Liver function test increased [Unknown]

NARRATIVE: CASE EVENT DATE: 20200722
